FAERS Safety Report 24569657 (Version 2)
Quarter: 2024Q4

REPORT INFORMATION
  Report Type: Spontaneous
  Country: GB (occurrence: GB)
  Receive Date: 20241031
  Receipt Date: 20241230
  Transmission Date: 20250115
  Serious: Yes (Other)
  Sender: MYLAN
  Company Number: GB-MHRA-TPP11919105C6822533YC1729764518115

PATIENT
  Age: 64 Year
  Sex: Female
  Weight: 94 kg

DRUGS (11)
  1. ATORVASTATIN [Suspect]
     Active Substance: ATORVASTATIN
     Indication: Ill-defined disorder
     Dosage: 1 DOSAGE FORM, QD (ONE PER DAY)
     Route: 065
     Dates: start: 20230207
  2. ATORVASTATIN [Suspect]
     Active Substance: ATORVASTATIN
     Dosage: UNK
     Route: 065
     Dates: start: 20241024
  3. ESTRADIOL [Concomitant]
     Active Substance: ESTRADIOL
     Dosage: 1 DOSAGE FORM (APPLY ONE TWICE WEEKLY)
     Route: 065
     Dates: start: 20240926
  4. BENDROFLUMETHIAZIDE [Concomitant]
     Active Substance: BENDROFLUMETHIAZIDE
     Indication: Ill-defined disorder
     Dosage: 1 DOSAGE FORM, QD (ONE PER DAY)
     Route: 065
     Dates: start: 20230207
  5. ALBUTEROL [Concomitant]
     Active Substance: ALBUTEROL
     Indication: Ill-defined disorder
     Dosage: UNK, PRN (1-2 PUFFS FOUR TIMES DAILY WHEN REQUIRED)
     Route: 055
     Dates: start: 20230207
  6. SERTRALINE [Concomitant]
     Active Substance: SERTRALINE HYDROCHLORIDE
     Indication: Ill-defined disorder
     Dosage: 1 DOSAGE FORM, QD (ONE PER DAY)
     Route: 065
     Dates: start: 20230207
  7. LANSOPRAZOLE [Concomitant]
     Active Substance: LANSOPRAZOLE
     Indication: Ill-defined disorder
     Dosage: 1 DOSAGE FORM, QD (ONE PER DAY)
     Route: 065
     Dates: start: 20230802
  8. AMLODIPINE [Concomitant]
     Active Substance: AMLODIPINE BESYLATE
     Indication: Ill-defined disorder
     Dosage: 1 DOSAGE FORM, QD (ONE PER DAY)
     Route: 065
     Dates: start: 20240509
  9. BECLOMETHASONE\FORMOTEROL [Concomitant]
     Active Substance: BECLOMETHASONE\FORMOTEROL
     Indication: Ill-defined disorder
     Dosage: 2 DOSAGE FORM, BID (2 PUFFS TWICE DAILY)
     Route: 055
     Dates: start: 20240611
  10. RANITIDINE HYDROCHLORIDE [Concomitant]
     Active Substance: RANITIDINE HYDROCHLORIDE
     Indication: Ill-defined disorder
     Dosage: 10 MILLILITER, Q6H (HALF AN HOUR AFTER EATING AND)
     Route: 065
     Dates: start: 20240708
  11. ATORVASTATIN [Concomitant]
     Active Substance: ATORVASTATIN
     Indication: Ill-defined disorder
     Dosage: 1 DOSAGE FORM, QD (TAKE ONE DAILY  )
     Route: 065
     Dates: start: 20230207

REACTIONS (2)
  - Glossodynia [Not Recovered/Not Resolved]
  - Glossitis [Recovered/Resolved]

NARRATIVE: CASE EVENT DATE: 20241024
